FAERS Safety Report 5332989-0 (Version None)
Quarter: 2007Q1

REPORT INFORMATION
  Report Type: 
  Country: None (occurrence: None)
  Receive Date: 20070306
  Receipt Date: 20061020
  Transmission Date: 20070707
  Serious: Yes (Hospitalization)
  Sender: FDA-Public Use
  Company Number: A03200606417

PATIENT
  Age: 51 Year
  Sex: Male
  Weight: 77.1 kg

DRUGS (7)
  1. PLAVIX [Suspect]
     Indication: CORONARY ARTERIAL STENT INSERTION
     Dosage: 75 MG QD - ORAL
     Route: 048
     Dates: start: 20041101
  2. VALSARTAN [Concomitant]
  3. PRAVASTATIN SODIUM [Concomitant]
  4. GLIMEPIRIDE [Concomitant]
  5. ACETYLSALICYLIC ACID SRT [Concomitant]
  6. CARVEDILOL [Concomitant]
  7. FOLIC ACID [Concomitant]

REACTIONS (3)
  - CHEST PAIN [None]
  - CORONARY ARTERY OCCLUSION [None]
  - HEART RATE INCREASED [None]
